FAERS Safety Report 7656862-8 (Version None)
Quarter: 2011Q3

REPORT INFORMATION
  Report Type: 
  Country: None (occurrence: None)
  Receive Date: 20110729
  Receipt Date: 20110719
  Transmission Date: 20111222
  Serious: Yes (Other)
  Sender: FDA-Public Use
  Company Number: FK201101400

PATIENT
  Age: 54 Year
  Sex: Female
  Weight: 76 kg

DRUGS (5)
  1. VALPROATE (MANUFACTURER UNKNOWN) (VALPROATE SODIUM) (VALPROATE SODIUM) [Suspect]
     Indication: CONVULSION
     Dosage: INITIAL DOSES, INTRAVENOUS BOLUS; 1250 MG Q 8 H, INTRAVENOUS (NOT OTHERWISE SPECIFIED)
     Route: 042
  2. DORIPENEM (DORIPENEM) [Suspect]
     Indication: ANTIBIOTIC THERAPY
     Dosage: 500 MG, Q 8 H, INTRAVENOUS (NOT OTHERWISE SPECIFIED)
     Route: 042
  3. PIPERACILLIN AND TAZOBACTAM [Concomitant]
  4. CEFTRIAXONE [Concomitant]
  5. LEVOFLOXACIN [Concomitant]

REACTIONS (2)
  - DRUG INTERACTION [None]
  - DRUG LEVEL DECREASED [None]
